FAERS Safety Report 11399415 (Version 1)
Quarter: 2015Q3

REPORT INFORMATION
  Report Type: Report from Study
  Country: US (occurrence: US)
  Receive Date: 20150820
  Receipt Date: 20150820
  Transmission Date: 20151125
  Serious: No
  Sender: FDA-Public Use
  Company Number: US-CELGENEUS-USA-2015076133

PATIENT
  Sex: Male

DRUGS (6)
  1. DEXAMETHASONE. [Suspect]
     Active Substance: DEXAMETHASONE
     Indication: PLASMA CELL MYELOMA
     Route: 065
  2. REVLIMID [Suspect]
     Active Substance: LENALIDOMIDE
     Indication: PLASMA CELL MYELOMA
     Dosage: PRE SCT
     Route: 048
  3. REVLIMID [Suspect]
     Active Substance: LENALIDOMIDE
     Dosage: RESTARTED AFTER RELAPSE
     Route: 048
  4. PAMIDRONATE [Concomitant]
     Active Substance: PAMIDRONATE DISODIUM
     Indication: BONE DISORDER
     Route: 065
  5. VELCADE [Concomitant]
     Active Substance: BORTEZOMIB
     Indication: PLASMA CELL MYELOMA
     Route: 065
  6. PAMIDRONATE [Concomitant]
     Active Substance: PAMIDRONATE DISODIUM
     Route: 065

REACTIONS (10)
  - Skin haemorrhage [Unknown]
  - Unevaluable event [Unknown]
  - Muscle spasms [Unknown]
  - Hot flush [Unknown]
  - Plasma cell myeloma recurrent [Unknown]
  - Cognitive disorder [Unknown]
  - Personality change [Unknown]
  - Fatigue [Unknown]
  - Insomnia [Unknown]
  - Clumsiness [Unknown]
